FAERS Safety Report 7241434-X (Version None)
Quarter: 2011Q1

REPORT INFORMATION
  Report Type: 
  Country: None (occurrence: None)
  Receive Date: 20110124
  Receipt Date: 20110110
  Transmission Date: 20110831
  Serious: Yes (Hospitalization, Other)
  Sender: FDA-Public Use
  Company Number: PHHY2010PL86671

PATIENT
  Age: 60 Year
  Sex: Male

DRUGS (5)
  1. CYCLOPHOSPHAMIDE [Suspect]
     Dosage: 1000 MG, 9 INFUSION
  2. GOLD SALTS [Concomitant]
  3. CYCLOPHOSPHAMIDE [Suspect]
     Dosage: 9 G
     Dates: start: 20071001, end: 20081201
  4. ARECHIN [Concomitant]
  5. METHOTREXATE [Suspect]
     Indication: RHEUMATOID ARTHRITIS
     Dosage: UNK
     Dates: start: 20040101, end: 20070101

REACTIONS (12)
  - EXERCISE TOLERANCE DECREASED [None]
  - INFLAMMATION [None]
  - ANAEMIA [None]
  - RHEUMATOID NODULE [None]
  - DYSPNOEA [None]
  - OSTEOPOROSIS [None]
  - LUNG DISORDER [None]
  - PYREXIA [None]
  - PNEUMOTHORAX [None]
  - CREPITATIONS [None]
  - EMPYEMA [None]
  - PLEURAL EFFUSION [None]
